FAERS Safety Report 8187209-9 (Version None)
Quarter: 2012Q1

REPORT INFORMATION
  Report Type: 
  Country: None (occurrence: None)
  Receive Date: 20120306
  Receipt Date: 20120229
  Transmission Date: 20120608
  Serious: Yes (Death)
  Sender: FDA-Public Use
  Company Number: US-GILEAD-2012-0048876

PATIENT
  Sex: Female

DRUGS (2)
  1. LETAIRIS [Suspect]
     Indication: PORTAL HYPERTENSION
     Dosage: 5 MG, UNK
     Route: 048
     Dates: start: 20111214, end: 20111222
  2. LETAIRIS [Suspect]
     Indication: HEPATIC CIRRHOSIS

REACTIONS (1)
  - SEPSIS [None]
